FAERS Safety Report 17332412 (Version 2)
Quarter: 2020Q1

REPORT INFORMATION
  Report Type: Other
  Country: RO (occurrence: RO)
  Receive Date: 20200127
  Receipt Date: 20200129
  Transmission Date: 20200409
  Serious: Yes (Death, Hospitalization)
  Sender: FDA-Public Use
  Company Number: RO-CELLTRION INC.-2020RO018370

PATIENT

DRUGS (3)
  1. RITUXIMAB (UNKNOWN) [Suspect]
     Active Substance: RITUXIMAB
     Indication: LYMPHOMA
     Dosage: 1400 MG EVERY 21 DAYS
     Route: 065
     Dates: start: 201906
  2. RITUXIMAB (UNKNOWN) [Suspect]
     Active Substance: RITUXIMAB
     Dosage: 1400 MG EVERY 21 DAYS
     Route: 065
     Dates: start: 20190814, end: 20191118
  3. CHOP [Concomitant]
     Active Substance: CYCLOPHOSPHAMIDE\DOXORUBICIN\PREDNISONE\VINCRISTINE
     Indication: LYMPHOMA
     Dosage: UNK
     Route: 065
     Dates: start: 20190712, end: 20191118

REACTIONS (10)
  - Gastrointestinal disorder [Fatal]
  - Overdose [Unknown]
  - Febrile neutropenia [Fatal]
  - Immunodeficiency [Fatal]
  - Asthenia [Fatal]
  - Peritonitis [Fatal]
  - Diarrhoea [Fatal]
  - Cardiac arrest [Fatal]
  - Gait disturbance [Fatal]
  - Nasopharyngitis [Fatal]
